FAERS Safety Report 8157811-9 (Version None)
Quarter: 2012Q1

REPORT INFORMATION
  Report Type: 
  Country: None (occurrence: None)
  Receive Date: 20120222
  Receipt Date: 20120213
  Transmission Date: 20120608
  Serious: No
  Sender: FDA-Public Use
  Company Number: US-B.I. PHARMACEUTICALS,INC./RIDGEFIELD-2012-BP-02757BP

PATIENT
  Sex: Female

DRUGS (6)
  1. AGGRENOX [Suspect]
     Route: 048
     Dates: start: 20110801
  2. LASIX [Concomitant]
  3. LISINOPRIL [Concomitant]
  4. INSULIN [Concomitant]
     Indication: TYPE 1 DIABETES MELLITUS
  5. CARVEDILOL [Concomitant]
     Indication: CARDIAC DISORDER
  6. AGGRENOX [Suspect]
     Indication: CEREBROVASCULAR ACCIDENT PROPHYLAXIS
     Route: 048
     Dates: start: 20110701, end: 20110701

REACTIONS (2)
  - VOMITING [None]
  - ECZEMA [None]
